FAERS Safety Report 7408677-3 (Version None)
Quarter: 2011Q2

REPORT INFORMATION
  Report Type: 
  Country: None (occurrence: None)
  Receive Date: 20110412
  Receipt Date: 20110408
  Transmission Date: 20111010
  Serious: No
  Sender: FDA-Public Use
  Company Number: US-TEVA-275666USA

PATIENT
  Sex: Female
  Weight: 56.75 kg

DRUGS (4)
  1. NUVARING [Concomitant]
     Indication: CONTRACEPTION
     Route: 067
     Dates: start: 20110403
  2. KLONOPIN [Concomitant]
     Indication: ANXIETY DISORDER
     Dosage: 2 MILLIGRAM;
     Route: 048
     Dates: start: 19980101
  3. PLAN B ONE-STEP [Suspect]
     Indication: POST COITAL CONTRACEPTION
     Dosage: 1.5 MILLIGRAM;
     Route: 048
     Dates: start: 20110404, end: 20110404
  4. LAMICTAL [Concomitant]
     Indication: ANXIETY DISORDER
     Dosage: 300 MILLIGRAM;
     Route: 048
     Dates: start: 20100101

REACTIONS (2)
  - MENSTRUATION IRREGULAR [None]
  - PELVIC PAIN [None]
